FAERS Safety Report 16096941 (Version 4)
Quarter: 2020Q2

REPORT INFORMATION
  Report Type: Spontaneous
  Country: US (occurrence: US)
  Receive Date: 20190320
  Receipt Date: 20200514
  Transmission Date: 20200713
  Serious: Yes (Other)
  Sender: FDA-Public Use
  Company Number: US-PFIZER INC-2019115776

PATIENT
  Age: 46 Year
  Sex: Female
  Weight: 81.65 kg

DRUGS (1)
  1. PREMARIN [Suspect]
     Active Substance: ESTROGENS, CONJUGATED
     Indication: HYSTERECTOMY
     Dosage: 0.45 MG, DAILY
     Route: 048
     Dates: start: 1984

REACTIONS (7)
  - Product dose omission [Unknown]
  - Neuropathy peripheral [Recovering/Resolving]
  - Blood pressure abnormal [Unknown]
  - Limb discomfort [Recovering/Resolving]
  - Muscle spasms [Recovered/Resolved]
  - Off label use [Unknown]
  - Product use in unapproved indication [Unknown]

NARRATIVE: CASE EVENT DATE: 1984
